FAERS Safety Report 4408225-6 (Version None)
Quarter: 2004Q3

REPORT INFORMATION
  Report Type: 
  Country: None (occurrence: None)
  Receive Date: 20040726
  Receipt Date: 20040726
  Transmission Date: 20050211
  Serious: Yes (Death)
  Sender: FDA-Public Use
  Company Number: None

PATIENT
  Age: 57 Year
  Sex: Male
  Weight: 107.1396 kg

DRUGS (5)
  1. PROCRIT         40000          ORTHO-BIOTECH [Suspect]
     Indication: ANAEMIA OF MALIGNANT DISEASE
     Dosage: 40000  WEEKLY  SUBCUTANEOUS
     Route: 058
     Dates: start: 20040513, end: 20040607
  2. PREDNISONE [Concomitant]
  3. LASIX [Concomitant]
  4. MORPHINE [Concomitant]
  5. VELCADE [Concomitant]

REACTIONS (4)
  - ASTHENIA [None]
  - BACK PAIN [None]
  - CONFUSIONAL STATE [None]
  - RESPIRATORY ARREST [None]
